FAERS Safety Report 6557826-8 (Version None)
Quarter: 2010Q1

REPORT INFORMATION
  Report Type: 
  Country: None (occurrence: None)
  Receive Date: 20100128
  Receipt Date: 20100128
  Transmission Date: 20100710
  Serious: Yes (Other)
  Sender: FDA-Public Use
  Company Number: None

PATIENT
  Age: 66 Year
  Sex: Female
  Weight: 81.1939 kg

DRUGS (1)
  1. JANUVIA [Suspect]
     Indication: TYPE 2 DIABETES MELLITUS
     Dosage: 100 MG. 1 TAB ORAL
     Route: 048
     Dates: start: 20091118, end: 20100116

REACTIONS (3)
  - EXCESSIVE EYE BLINKING [None]
  - SINUS CONGESTION [None]
  - SINUS DISORDER [None]
